FAERS Safety Report 8153674-6 (Version None)
Quarter: 2012Q1

REPORT INFORMATION
  Report Type: 
  Country: None (occurrence: None)
  Receive Date: 20120221
  Receipt Date: 20120215
  Transmission Date: 20120608
  Serious: Yes (Hospitalization, Congenital Anomaly, Other)
  Sender: FDA-Public Use
  Company Number: DE-ABBOTT-12P-062-0905178-00

PATIENT
  Sex: Female

DRUGS (1)
  1. VALPROATE SODIUM [Suspect]
     Indication: MATERNAL EXPOSURE TIMING UNSPECIFIED
     Route: 064

REACTIONS (11)
  - RESPIRATORY DISTRESS [None]
  - CONGENITAL INFECTION [None]
  - FOETAL EXPOSURE DURING PREGNANCY [None]
  - TACHYPNOEA [None]
  - DYSMORPHISM [None]
  - NIPPLE DISORDER [None]
  - LOW SET EARS [None]
  - PERICARDIAL EFFUSION [None]
  - PNEUMOTHORAX [None]
  - HAIR DISORDER [None]
  - ATRIAL SEPTAL DEFECT [None]
